FAERS Safety Report 7011658-5 (Version None)
Quarter: 2010Q3

REPORT INFORMATION
  Report Type: 
  Country: None (occurrence: None)
  Receive Date: 20100923
  Receipt Date: 20090323
  Transmission Date: 20110219
  Serious: No
  Sender: FDA-Public Use
  Company Number: US-WYE-H08701209

PATIENT
  Age: 27 Year
  Sex: Female

DRUGS (3)
  1. ADVIL COLD AND SINUS [Suspect]
     Indication: NASOPHARYNGITIS
     Dosage: 1 CAPLET AS NEEDED
     Route: 048
     Dates: start: 19920101
  2. ADVIL COLD AND SINUS [Suspect]
     Indication: SINUS DISORDER
  3. ORAL CONTRACEPTIVE NOS [Concomitant]

REACTIONS (2)
  - INSOMNIA [None]
  - LETHARGY [None]
